FAERS Safety Report 12114481 (Version 1)
Quarter: 2016Q1

REPORT INFORMATION
  Report Type: Spontaneous
  Country: US (occurrence: None)
  Receive Date: 20160224
  Receipt Date: 20160224
  Transmission Date: 20160526
  Serious: Yes (Hospitalization)
  Sender: FDA-Public Use
  Company Number: None

PATIENT
  Age: 56 Year
  Sex: Female
  Weight: 82.8 kg

DRUGS (4)
  1. METFORMIN HYDROCHLORIDE. [Suspect]
     Active Substance: METFORMIN HYDROCHLORIDE
     Dates: end: 20160215
  2. TAXOL [Suspect]
     Active Substance: PACLITAXEL
     Dates: end: 20160209
  3. CARBOPLATIN. [Suspect]
     Active Substance: CARBOPLATIN
     Dates: end: 20160209
  4. TAXOL [Suspect]
     Active Substance: PACLITAXEL
     Dates: end: 20160209

REACTIONS (4)
  - Nausea [None]
  - Vomiting [None]
  - Nuclear magnetic resonance imaging brain abnormal [None]
  - Seizure [None]

NARRATIVE: CASE EVENT DATE: 20160216
